FAERS Safety Report 16590966 (Version 2)
Quarter: 2019Q3

REPORT INFORMATION
  Report Type: Spontaneous
  Country: JP (occurrence: JP)
  Receive Date: 20190718
  Receipt Date: 20190926
  Transmission Date: 20191004
  Serious: Yes (Hospitalization, Other)
  Sender: FDA-Public Use
  Company Number: JP-AMGEN-JPNSP2019093197

PATIENT
  Age: 87 Year
  Sex: Female

DRUGS (9)
  1. TANATRIL [Concomitant]
     Active Substance: IMIDAPRIL
     Dosage: UNK
  2. FERROMIA [Concomitant]
     Active Substance: SODIUM FERROUS CITRATE
     Dosage: UNK
  3. PRAVASTATIN SODIUM. [Concomitant]
     Active Substance: PRAVASTATIN SODIUM
     Dosage: UNK
  4. MOHRUS [Concomitant]
     Active Substance: KETOPROFEN
     Dosage: UNK
  5. LOQOA [Concomitant]
     Dosage: UNK
  6. EVENITY [Suspect]
     Active Substance: ROMOSOZUMAB-AQQG
     Indication: OSTEOPOROSIS
     Dosage: 210 MILLIGRAM
     Route: 058
     Dates: start: 20190327, end: 20190522
  7. EDIROL [Concomitant]
     Active Substance: ELDECALCITOL
     Dosage: UNK
  8. NORVASC [Concomitant]
     Active Substance: AMLODIPINE BESYLATE
     Dosage: UNK
  9. LYRICA [Concomitant]
     Active Substance: PREGABALIN
     Dosage: UNK

REACTIONS (4)
  - Musculoskeletal pain [Recovered/Resolved]
  - Subarachnoid haemorrhage [Unknown]
  - Hydrocephalus [Unknown]
  - Ruptured cerebral aneurysm [Unknown]

NARRATIVE: CASE EVENT DATE: 2019
